FAERS Safety Report 4785705-5 (Version None)
Quarter: 2005Q4

REPORT INFORMATION
  Report Type: 
  Country: None (occurrence: None)
  Receive Date: 20051003
  Receipt Date: 20050919
  Transmission Date: 20060501
  Serious: Yes (Other)
  Sender: FDA-Public Use
  Company Number: 2005AC01481

PATIENT
  Age: 64 Year
  Sex: Male

DRUGS (4)
  1. QUETIAPINE FUMARATE [Suspect]
     Indication: INSOMNIA
     Route: 048
  2. QUETIAPINE FUMARATE [Suspect]
     Route: 048
  3. LITHIUM [Concomitant]
     Dosage: PATIENT HAD BEEN RECEIVING LITHIUM FOR SIX MONTHS
  4. DIVALPROEX SODIUM [Concomitant]
     Dosage: 500 MG IN MORNING AND 1000 MG AT NIGHT. PATIENT HAD BEEN RECEIVING DRUG FOR SIX MONTHS.

REACTIONS (3)
  - CHOREA [None]
  - DRUG WITHDRAWAL SYNDROME [None]
  - DYSKINESIA [None]
